FAERS Safety Report 5621981-4 (Version None)
Quarter: 2008Q1

REPORT INFORMATION
  Report Type: 
  Country: None (occurrence: None)
  Receive Date: 20080211
  Receipt Date: 20080204
  Transmission Date: 20080703
  Serious: Yes (Congenital Anomaly)
  Sender: FDA-Public Use
  Company Number: B0507242A

PATIENT
  Sex: Male

DRUGS (2)
  1. ZEFFIX [Suspect]
     Indication: CHRONIC HEPATITIS
     Dosage: 100MG PER DAY
     Dates: start: 20060302
  2. VIREAD [Suspect]
     Indication: CHRONIC HEPATITIS
     Dosage: 245MG PER DAY
     Dates: start: 20060302

REACTIONS (2)
  - DRUG EXPOSURE DURING PREGNANCY [None]
  - TALIPES [None]
